FAERS Safety Report 24265170 (Version 1)
Quarter: 2024Q3

REPORT INFORMATION
  Report Type: Spontaneous
  Country: US (occurrence: US)
  Receive Date: 20240829
  Receipt Date: 20240829
  Transmission Date: 20241017
  Serious: Yes (Other)
  Sender: INSUD PHARMA
  Company Number: US-INSUD PHARMA-2408US06725

PATIENT

DRUGS (4)
  1. OMEPRAZOLE [Suspect]
     Active Substance: OMEPRAZOLE
     Indication: Product used for unknown indication
     Dosage: UNK
     Route: 065
  2. PEMBROLIZUMAB [Suspect]
     Active Substance: PEMBROLIZUMAB
     Indication: Endometrial adenocarcinoma
     Dosage: UNK
     Route: 065
  3. LENVATINIB [Suspect]
     Active Substance: LENVATINIB
     Indication: Endometrial adenocarcinoma
  4. ASPIRIN [Concomitant]
     Active Substance: ASPIRIN

REACTIONS (5)
  - Acute kidney injury [Recovered/Resolved]
  - Renal tubular injury [Recovered/Resolved]
  - Renal tubular necrosis [Recovered/Resolved]
  - Focal segmental glomerulosclerosis [Recovered/Resolved]
  - Renal failure [Recovered/Resolved]
